FAERS Safety Report 8387087-9 (Version None)
Quarter: 2012Q2

REPORT INFORMATION
  Report Type: 
  Country: None (occurrence: None)
  Receive Date: 20120525
  Receipt Date: 20120518
  Transmission Date: 20120825
  Serious: Yes (Other)
  Sender: FDA-Public Use
  Company Number: US-ACTELION-A-US2011-54463

PATIENT

DRUGS (7)
  1. REMODULIN [Concomitant]
  2. TRACLEER [Suspect]
     Route: 048
  3. CALCIUM CHANNEL BLOCKERS [Concomitant]
  4. PRADAXA [Concomitant]
  5. OXYGEN [Concomitant]
  6. TRACLEER [Suspect]
     Indication: PULMONARY ARTERIAL HYPERTENSION
     Dosage: UNK
     Route: 048
     Dates: start: 20020916
  7. COUMADIN [Concomitant]

REACTIONS (6)
  - HAEMORRHAGE [None]
  - SWELLING [None]
  - ECCHYMOSIS [None]
  - EPISTAXIS [None]
  - PAIN [None]
  - ERYTHEMA [None]
